FAERS Safety Report 18438852 (Version 3)
Quarter: 2020Q4

REPORT INFORMATION
  Report Type: Report from Study
  Country: US (occurrence: US)
  Receive Date: 20201028
  Receipt Date: 20201125
  Transmission Date: 20210114
  Serious: Yes (Death, Other)
  Sender: FDA-Public Use
  Company Number: US-OTSUKA-2020_026223

PATIENT
  Age: 75 Year
  Sex: Male

DRUGS (1)
  1. ASTX727 [Suspect]
     Active Substance: CEDAZURIDINE\DECITABINE
     Indication: MYELODYSPLASTIC SYNDROME
     Dosage: UNK
     Route: 065
     Dates: start: 20200930, end: 202010

REACTIONS (5)
  - Death [Fatal]
  - Nonspecific reaction [Unknown]
  - Thrombocytopenia [Unknown]
  - Therapy cessation [Unknown]
  - Refractoriness to platelet transfusion [Unknown]

NARRATIVE: CASE EVENT DATE: 202010
